FAERS Safety Report 5765996-4 (Version None)
Quarter: 2008Q2

REPORT INFORMATION
  Report Type: 
  Country: None (occurrence: None)
  Receive Date: 20080611
  Receipt Date: 20080421
  Transmission Date: 20081010
  Serious: Yes (Other)
  Sender: FDA-Public Use
  Company Number: US-BRISTOL-MYERS SQUIBB COMPANY-14166144

PATIENT
  Age: 50 Year
  Sex: Female

DRUGS (1)
  1. CARBIDOPA + LEVODOPA [Suspect]
     Indication: PARKINSON'S DISEASE
     Dosage: 1 DOSAGE FORM = 1 1/2 TAB
     Route: 048
     Dates: start: 20070619, end: 20070718

REACTIONS (2)
  - THERAPEUTIC RESPONSE UNEXPECTED WITH DRUG SUBSTITUTION [None]
  - TREMOR [None]
